FAERS Safety Report 9668954 (Version 1)
Quarter: 2013Q4

REPORT INFORMATION
  Report Type: Spontaneous
  Country: GB (occurrence: GB)
  Receive Date: 20131105
  Receipt Date: 20131105
  Transmission Date: 20140711
  Serious: Yes (Other)
  Sender: FDA-Public Use
  Company Number: GB-ABBVIE-13P-167-1164023-00

PATIENT
  Sex: Male
  Weight: 101.4 kg

DRUGS (1)
  1. HUMIRA [Suspect]
     Indication: PSORIASIS
     Dosage: CONTINUED
     Route: 058
     Dates: start: 20120104

REACTIONS (1)
  - Transient ischaemic attack [Recovered/Resolved]
